FAERS Safety Report 10209555 (Version 3)
Quarter: 2015Q1

REPORT INFORMATION
  Report Type: Report from Study
  Country: DE (occurrence: DE)
  Receive Date: 20140602
  Receipt Date: 20150223
  Transmission Date: 20150720
  Serious: Yes (Hospitalization)
  Sender: FDA-Public Use
  Company Number: DE-ROCHE-1410110

PATIENT
  Age: 81 Year
  Sex: Female

DRUGS (5)
  1. HYALURONIC ACID [Concomitant]
     Active Substance: HYALURONIC ACID
  2. RANIBIZUMAB [Suspect]
     Active Substance: RANIBIZUMAB
     Indication: VISUAL IMPAIRMENT
     Dosage: LAST DOSE RECEIVED ON 10/APR/2014
     Route: 050
     Dates: start: 20140313
  3. RANIBIZUMAB [Suspect]
     Active Substance: RANIBIZUMAB
     Indication: VISUAL ACUITY REDUCED
  4. RANIBIZUMAB [Suspect]
     Active Substance: RANIBIZUMAB
     Indication: RETINAL CYST
  5. RANIBIZUMAB [Suspect]
     Active Substance: RANIBIZUMAB
     Indication: DIABETIC RETINAL OEDEMA
     Route: 050
     Dates: start: 20140508, end: 20140508

REACTIONS (4)
  - Hypertrophic cardiomyopathy [Unknown]
  - Pulmonary oedema [Recovered/Resolved]
  - Myocarditis [Recovered/Resolved]
  - Pulmonary oedema [Unknown]

NARRATIVE: CASE EVENT DATE: 20140426
